FAERS Safety Report 6888536-5 (Version None)
Quarter: 2010Q3

REPORT INFORMATION
  Report Type: 
  Country: None (occurrence: None)
  Receive Date: 20100730
  Receipt Date: 20100720
  Transmission Date: 20110219
  Serious: Yes (Other)
  Sender: FDA-Public Use
  Company Number: CG-WATSON-2010-10082

PATIENT
  Age: 17 Year
  Sex: Female

DRUGS (1)
  1. TRIAMCINOLONE DIACETATE [Suspect]
     Indication: ARTHRALGIA
     Dosage: 40 MG, 1/WEEK
     Route: 014

REACTIONS (3)
  - AMYOTROPHY [None]
  - SKIN DEPIGMENTATION [None]
  - TENDON RUPTURE [None]
